FAERS Safety Report 5032555-0 (Version None)
Quarter: 2006Q2

REPORT INFORMATION
  Report Type: 
  Country: None (occurrence: None)
  Receive Date: 20060621
  Receipt Date: 20060621
  Transmission Date: 20061013
  Serious: Yes (Death, Hospitalization)
  Sender: FDA-Public Use
  Company Number: None

PATIENT
  Sex: Female
  Weight: 55.4 kg

DRUGS (1)
  1. TEMOZOLOMIDE [Suspect]
     Dosage: 4920 MG

REACTIONS (4)
  - DISEASE PROGRESSION [None]
  - LEUKOPENIA [None]
  - PNEUMONIA [None]
  - PYREXIA [None]
